FAERS Safety Report 6751359-1 (Version None)
Quarter: 2010Q2

REPORT INFORMATION
  Report Type: 
  Country: None (occurrence: None)
  Receive Date: 20100601
  Receipt Date: 20100519
  Transmission Date: 20101027
  Serious: Yes (Other)
  Sender: FDA-Public Use
  Company Number: 1000013228

PATIENT
  Age: 33 Year
  Sex: Male

DRUGS (3)
  1. ESCITALOPRAM [Suspect]
     Indication: GENERALISED ANXIETY DISORDER
     Dosage: 10 MG (10 MG, 1 IN 1 D), ORAL
     Route: 048
     Dates: start: 20100305, end: 20100407
  2. ESCITALOPRAM [Suspect]
     Indication: GENERALISED ANXIETY DISORDER
     Dosage: 5 MG (5 MG,  IN 1 D),ORAL
     Route: 048
     Dates: start: 20100408, end: 20100411
  3. ESCITALOPRAM [Suspect]
     Indication: GENERALISED ANXIETY DISORDER
     Dosage: 10 MG (10 MG, 1 IN 1 D), ORAL
     Route: 048
     Dates: start: 20100412

REACTIONS (7)
  - AGITATION [None]
  - ANXIETY [None]
  - DRUG EFFECT DECREASED [None]
  - EJACULATION DELAYED [None]
  - INSOMNIA [None]
  - LIBIDO DECREASED [None]
  - POOR QUALITY SLEEP [None]
